FAERS Safety Report 9472491 (Version 1)
Quarter: 2013Q3

REPORT INFORMATION
  Report Type: Spontaneous
  Country: US (occurrence: None)
  Receive Date: 20130821
  Receipt Date: 20130821
  Transmission Date: 20140515
  Serious: No
  Sender: FDA-Public Use
  Company Number: None

PATIENT
  Age: 56 Year
  Sex: Female

DRUGS (1)
  1. VELCADE [Suspect]
     Indication: PLASMA CELL MYELOMA

REACTIONS (3)
  - Fatigue [None]
  - Pain [None]
  - Injection site erythema [None]
